FAERS Safety Report 8801223 (Version 2)
Quarter: 2015Q1

REPORT INFORMATION
  Report Type: Report from Study
  Country: US (occurrence: US)
  Receive Date: 20120921
  Receipt Date: 20150326
  Transmission Date: 20150721
  Serious: Yes (Death)
  Sender: FDA-Public Use
  Company Number: US-ROCHE-1124606

PATIENT
  Sex: Male

DRUGS (13)
  1. TRIAMTERENE. [Concomitant]
     Active Substance: TRIAMTERENE
     Route: 065
  2. BENADRYL [Concomitant]
     Active Substance: DIPHENHYDRAMINE HYDROCHLORIDE
     Indication: WHEEZING
     Dosage: DOSE RECEIVED ON 17/OCT/ 2008, 24/SEP/2008
     Route: 065
  3. MORPHINE [Concomitant]
     Active Substance: MORPHINE
     Indication: PAIN
     Route: 065
  4. MEGESTROL ACETATE. [Concomitant]
     Active Substance: MEGESTROL ACETATE
     Route: 065
  5. ZOLPIDEM [Concomitant]
     Active Substance: ZOLPIDEM\ZOLPIDEM TARTRATE
     Route: 065
  6. HYDROCHLOROTHIAZIDE. [Concomitant]
     Active Substance: HYDROCHLOROTHIAZIDE
     Route: 065
  7. SENOKOT [Concomitant]
     Active Substance: SENNOSIDES
  8. AVASTIN [Suspect]
     Active Substance: BEVACIZUMAB
     Indication: MALIGNANT URINARY TRACT NEOPLASM
  9. XELODA [Suspect]
     Active Substance: CAPECITABINE
     Indication: PRODUCT USED FOR UNKNOWN INDICATION
     Route: 065
  10. MIRALAX [Concomitant]
     Active Substance: POLYETHYLENE GLYCOL 3350
  11. AVASTIN [Suspect]
     Active Substance: BEVACIZUMAB
     Indication: RENAL CANCER
     Route: 042
     Dates: start: 20080924
  12. ARANESP [Concomitant]
     Active Substance: DARBEPOETIN ALFA
     Dosage: DOSE RECEIVED ON 17/OCT/ 2008
     Route: 065
  13. LIPITOR [Concomitant]
     Active Substance: ATORVASTATIN CALCIUM
     Route: 065

REACTIONS (13)
  - Death [Fatal]
  - Decreased appetite [Unknown]
  - Metastases to lymph nodes [Unknown]
  - Metastases to lung [Unknown]
  - Metastases to liver [Unknown]
  - Cachexia [Unknown]
  - Respiratory failure [Unknown]
  - Aneurysm [Unknown]
  - Lymphadenopathy [Unknown]
  - Dyspnoea [Unknown]
  - Pain [Unknown]
  - Restrictive pulmonary disease [Unknown]
  - Constipation [Unknown]
